FAERS Safety Report 4572171-8 (Version None)
Quarter: 2005Q1

REPORT INFORMATION
  Report Type: 
  Country: None (occurrence: None)
  Receive Date: 20050202
  Receipt Date: 20050119
  Transmission Date: 20050727
  Serious: Yes (Hospitalization)
  Sender: FDA-Public Use
  Company Number: 2005BI001361

PATIENT
  Age: 31 Year
  Sex: Female
  Weight: 70.7611 kg

DRUGS (1)
  1. AVONEX [Suspect]
     Indication: MULTIPLE SCLEROSIS
     Dosage: 30 UG;QW;IM
     Route: 030
     Dates: start: 20040501

REACTIONS (3)
  - ABSCESS INTESTINAL [None]
  - DIVERTICULITIS [None]
  - TACHYCARDIA [None]
